FAERS Safety Report 9325064 (Version 4)
Quarter: 2014Q2

REPORT INFORMATION
  Report Type: Spontaneous
  Country: IT (occurrence: None)
  Receive Date: 20130530
  Receipt Date: 20140610
  Transmission Date: 20141212
  Serious: Yes (Hospitalization, Other)
  Sender: FDA-Public Use
  Company Number: 2013AP005413

PATIENT
  Age: 16 Year
  Sex: Female

DRUGS (4)
  1. PAROXETINE [Suspect]
     Indication: DRUG ABUSE
     Dosage: 120 MG, SINGLE, ORAL
     Route: 048
     Dates: start: 20130205, end: 20130205
  2. LORAZEPAM [Suspect]
     Indication: DRUG ABUSE
     Dosage: 17.5 MG, SINGLE, ORAL
     Route: 048
     Dates: start: 20130205, end: 20130205
  3. IBUPROFEN [Suspect]
     Indication: DRUG ABUSE
     Dosage: 1200 MG, SINGLE, ORAL?
     Route: 048
     Dates: start: 20130205, end: 20130205
  4. VALERIANA OFFICINALIS [Suspect]
     Indication: PRODUCT USED FOR UNKNOWN INDICATION
     Dosage: UNK, ORAL
     Route: 048
     Dates: start: 20130205, end: 20130205

REACTIONS (3)
  - Confusional state [None]
  - Mydriasis [None]
  - Slow speech [None]
